FAERS Safety Report 4319512-4 (Version None)
Quarter: 2004Q1

REPORT INFORMATION
  Report Type: 
  Country: None (occurrence: None)
  Receive Date: 20040316
  Receipt Date: 20040226
  Transmission Date: 20041129
  Serious: Yes (Hospitalization, Other)
  Sender: FDA-Public Use
  Company Number: USA040361087

PATIENT
  Age: 9 Year
  Sex: Male

DRUGS (2)
  1. STRATTERA [Suspect]
     Dates: start: 20030901, end: 20040201
  2. LAMICTAL [Concomitant]

REACTIONS (2)
  - DISEASE RECURRENCE [None]
  - GRAND MAL CONVULSION [None]
